FAERS Safety Report 6564781-3 (Version None)
Quarter: 2010Q1

REPORT INFORMATION
  Report Type: 
  Country: None (occurrence: None)
  Receive Date: 20100201
  Receipt Date: 20100118
  Transmission Date: 20100710
  Serious: Yes (Other)
  Sender: FDA-Public Use
  Company Number: PHHY2009BE02580

PATIENT
  Age: 13 Year
  Sex: Male

DRUGS (4)
  1. RITALIN [Suspect]
     Indication: ATTENTION DEFICIT/HYPERACTIVITY DISORDER
     Dosage: 10 MG, UNK
     Route: 048
     Dates: start: 20050101
  2. CONCERTA [Suspect]
     Dosage: UNK
  3. RITALIN LA [Suspect]
     Dosage: 30 MG, UNK
     Dates: start: 20060101
  4. DEPAKENE [Concomitant]
     Indication: PETIT MAL EPILEPSY
     Dosage: UNK, UNK
     Dates: start: 20070101

REACTIONS (3)
  - BUNDLE BRANCH BLOCK RIGHT [None]
  - HYPERTENSION [None]
  - TACHYCARDIA [None]
